FAERS Safety Report 10716507 (Version 4)
Quarter: 2015Q4

REPORT INFORMATION
  Report Type: Spontaneous
  Country: DK (occurrence: DK)
  Receive Date: 20150116
  Receipt Date: 20151215
  Transmission Date: 20160304
  Serious: Yes (Other)
  Sender: FDA-Public Use
  Company Number: DK-JNJFOC-20150106780

PATIENT
  Age: 63 Year
  Sex: Male
  Weight: 82 kg

DRUGS (6)
  1. SALAZOPYRIN [Concomitant]
     Active Substance: SULFASALAZINE
     Indication: RHEUMATOID ARTHRITIS
     Route: 048
     Dates: start: 1994
  2. IMUREL [Suspect]
     Active Substance: AZATHIOPRINE SODIUM
     Indication: RHEUMATOID ARTHRITIS
     Route: 065
     Dates: start: 200808, end: 20150701
  3. SALAZOPYRIN [Concomitant]
     Active Substance: SULFASALAZINE
     Indication: RHEUMATOID ARTHRITIS
     Route: 048
     Dates: start: 1992, end: 1994
  4. IMUREL [Suspect]
     Active Substance: AZATHIOPRINE SODIUM
     Indication: RHEUMATOID ARTHRITIS
     Dosage: 50 MG ALTERNATING WITH 100 MG EACH SECOND DAY
     Route: 065
     Dates: start: 20060202
  5. IMUREL [Suspect]
     Active Substance: AZATHIOPRINE SODIUM
     Indication: RHEUMATOID ARTHRITIS
     Dosage: DOSE: 100 (UNITS UNSPECIFIED)
     Route: 065
     Dates: start: 20001126
  6. REMICADE [Suspect]
     Active Substance: INFLIXIMAB
     Indication: RHEUMATOID ARTHRITIS
     Dosage: 230 (UNITS UNSPECIFIED)??29 INFUSIONS IN TOTAL
     Route: 042
     Dates: start: 20100217, end: 20141126

REACTIONS (2)
  - Prostate cancer [Recovered/Resolved]
  - Radical prostatectomy [Recovered/Resolved]

NARRATIVE: CASE EVENT DATE: 20140804
